FAERS Safety Report 10207764 (Version 1)
Quarter: 2014Q2

REPORT INFORMATION
  Report Type: Spontaneous
  Country: US (occurrence: US)
  Receive Date: 20140530
  Receipt Date: 20140530
  Transmission Date: 20141212
  Serious: No
  Sender: FDA-Public Use
  Company Number: US-GLAXOSMITHKLINE-A1058512A

PATIENT
  Age: 81 Year
  Sex: Female
  Weight: 39.8 kg

DRUGS (2)
  1. VENTOLIN [Suspect]
     Indication: DYSPNOEA
     Dosage: 2PUFF AS REQUIRED
     Route: 055
     Dates: start: 20100422
  2. TAPAZOLE [Concomitant]
     Route: 048

REACTIONS (2)
  - Dyspnoea [Recovered/Resolved]
  - Product quality issue [Unknown]
